FAERS Safety Report 14453078 (Version 1)
Quarter: 2018Q1

REPORT INFORMATION
  Report Type: Spontaneous
  Country: DE (occurrence: DE)
  Receive Date: 20180129
  Receipt Date: 20180129
  Transmission Date: 20180509
  Serious: Yes (Other)
  Sender: FDA-Public Use
  Company Number: DE-JNJFOC-20180129269

PATIENT
  Sex: Female

DRUGS (4)
  1. TRUXAL [Suspect]
     Active Substance: CHLORPROTHIXENE
     Indication: BIPOLAR DISORDER
     Route: 064
  2. RISPERIDONE. [Suspect]
     Active Substance: RISPERIDONE
     Indication: SCHIZOPHRENIA
     Route: 064
     Dates: start: 20110222
  3. RISPERIDONE. [Suspect]
     Active Substance: RISPERIDONE
     Indication: BIPOLAR DISORDER
     Route: 064
     Dates: start: 20110222
  4. TRUXAL [Suspect]
     Active Substance: CHLORPROTHIXENE
     Indication: SCHIZOPHRENIA
     Route: 064

REACTIONS (2)
  - Developmental delay [Unknown]
  - Foetal exposure during pregnancy [Unknown]

NARRATIVE: CASE EVENT DATE: 2017
